FAERS Safety Report 11612768 (Version 1)
Quarter: 2015Q4

REPORT INFORMATION
  Report Type: Spontaneous
  Country: US (occurrence: US)
  Receive Date: 20151008
  Receipt Date: 20151008
  Transmission Date: 20160304
  Serious: Yes (Other)
  Sender: FDA-Public Use
  Company Number: US-JNJFOC-20150916251

PATIENT
  Age: 71 Year
  Sex: Male
  Weight: 86 kg

DRUGS (15)
  1. GABAPENTIN. [Suspect]
     Active Substance: GABAPENTIN
     Indication: NEURALGIA
     Route: 048
  2. ANTIGOUT PREPARATIONS [Concomitant]
     Active Substance: UNSPECIFIED INGREDIENT
     Indication: GOUT
     Route: 065
  3. NUCYNTA ER [Suspect]
     Active Substance: TAPENTADOL HYDROCHLORIDE
     Indication: BACK PAIN
     Route: 048
     Dates: start: 2013, end: 2015
  4. NUCYNTA [Suspect]
     Active Substance: TAPENTADOL HYDROCHLORIDE
     Indication: BACK PAIN
     Dosage: CUMULATIVE DOSE TO FIRST REACTION ONSET IS 54787.5 MG
     Route: 048
     Dates: start: 2012, end: 2012
  5. GABAPENTIN. [Suspect]
     Active Substance: GABAPENTIN
     Indication: NEURALGIA
     Route: 048
     Dates: start: 2014
  6. NUCYNTA ER [Suspect]
     Active Substance: TAPENTADOL HYDROCHLORIDE
     Indication: BACK PAIN
     Route: 048
     Dates: start: 2012, end: 2013
  7. NUCYNTA [Suspect]
     Active Substance: TAPENTADOL HYDROCHLORIDE
     Indication: BACK PAIN
     Dosage: CUMULATIVE DOSE TO FIRST REACTION ONSET IS 54787.5 MG
     Route: 048
     Dates: start: 2012
  8. MELOXICAM. [Concomitant]
     Active Substance: MELOXICAM
     Indication: PRODUCT USED FOR UNKNOWN INDICATION
     Route: 048
  9. NUCYNTA ER [Suspect]
     Active Substance: TAPENTADOL HYDROCHLORIDE
     Indication: BACK PAIN
     Route: 048
     Dates: start: 2012, end: 2012
  10. NUCYNTA ER [Suspect]
     Active Substance: TAPENTADOL HYDROCHLORIDE
     Indication: BACK PAIN
     Route: 048
     Dates: start: 2013, end: 2013
  11. NUCYNTA ER [Suspect]
     Active Substance: TAPENTADOL HYDROCHLORIDE
     Indication: BACK PAIN
     Route: 048
     Dates: start: 201507, end: 20150907
  12. TYLENOL [Concomitant]
     Active Substance: ACETAMINOPHEN
     Indication: PAIN
     Route: 065
  13. NUCYNTA ER [Suspect]
     Active Substance: TAPENTADOL HYDROCHLORIDE
     Indication: BACK PAIN
     Route: 048
     Dates: start: 2015, end: 201507
  14. GABAPENTIN. [Suspect]
     Active Substance: GABAPENTIN
     Indication: NEURALGIA
     Route: 048
     Dates: end: 201508
  15. NSAID^S [Concomitant]
     Active Substance: UNSPECIFIED INGREDIENT
     Indication: PAIN
     Route: 065

REACTIONS (6)
  - Pruritus [Recovering/Resolving]
  - Depression [Recovered/Resolved]
  - Overdose [Recovered/Resolved]
  - Adverse event [Unknown]
  - Altered state of consciousness [Recovered/Resolved]
  - Malaise [Recovered/Resolved]

NARRATIVE: CASE EVENT DATE: 2013
